FAERS Safety Report 9410595 (Version 1)
Quarter: 2013Q3

REPORT INFORMATION
  Report Type: Spontaneous
  Country: US (occurrence: US)
  Receive Date: 20130719
  Receipt Date: 20130719
  Transmission Date: 20140515
  Serious: Yes (Death, Life-Threatening, Hospitalization)
  Sender: FDA-Public Use
  Company Number: US-BRISTOL-MYERS SQUIBB COMPANY-19084573

PATIENT
  Age: 55 Year
  Sex: Male
  Weight: 86.62 kg

DRUGS (5)
  1. BYETTA [Suspect]
     Indication: TYPE 2 DIABETES MELLITUS
     Route: 048
     Dates: start: 2007, end: 20090512
  2. METFORMIN HCL [Suspect]
     Indication: TYPE 2 DIABETES MELLITUS
  3. LEVEMIR [Suspect]
     Indication: TYPE 2 DIABETES MELLITUS
  4. INSULIN [Suspect]
     Indication: TYPE 2 DIABETES MELLITUS
  5. GLIMEPIRIDE [Suspect]
     Indication: TYPE 2 DIABETES MELLITUS

REACTIONS (4)
  - Pancreatic carcinoma [Fatal]
  - Metastases to liver [Unknown]
  - Weight decreased [Unknown]
  - Blood glucose decreased [Unknown]
